FAERS Safety Report 8620228-4 (Version None)
Quarter: 2012Q3

REPORT INFORMATION
  Report Type: 
  Country: None (occurrence: None)
  Receive Date: 20120816
  Receipt Date: 20120816
  Transmission Date: 20120928
  Serious: No
  Sender: FDA-Public Use
  Company Number: None

PATIENT
  Sex: Male

DRUGS (8)
  1. CRESTOR [Concomitant]
  2. EGRIFTA [Suspect]
     Indication: LIPOATROPHY
     Dosage: 1MG 2MG DAILY SC
     Route: 058
     Dates: start: 20110715, end: 20120127
  3. PANTOPRAZOLE [Concomitant]
  4. ATRIPLA [Concomitant]
  5. LISINOPRIL AND HYDROCHLOROTHIAZIDE [Concomitant]
  6. WARFARIN SODIUM [Concomitant]
  7. CITALOPRAM HYDROBROMIDE [Concomitant]
  8. LORATADINE [Concomitant]

REACTIONS (2)
  - INSULIN-LIKE GROWTH FACTOR INCREASED [None]
  - ILL-DEFINED DISORDER [None]
